FAERS Safety Report 9580665 (Version 1)
Quarter: 2013Q3

REPORT INFORMATION
  Report Type: Spontaneous
  Country: US (occurrence: None)
  Receive Date: 20130916
  Receipt Date: 20130916
  Transmission Date: 20140515
  Serious: Yes (Hospitalization)
  Sender: FDA-Public Use
  Company Number: JPI-P-030622

PATIENT
  Age: 23 Year
  Sex: Female
  Weight: 52.16 kg

DRUGS (5)
  1. XYREM [Suspect]
     Indication: CATAPLEXY
     Route: 048
     Dates: start: 201209
  2. RISPERIDONE [Suspect]
     Indication: PSYCHOTIC DISORDER
     Dates: start: 20130302
  3. DULOXETINE HYDROCHLORIDE [Suspect]
     Indication: DEPRESSION
     Dates: start: 20130122
  4. LISDEXAMPHETAMINE DIMESYLATE [Concomitant]
  5. AMPHETAMINE, DEXTROAMPHETAMINE MIXED SALTS [Concomitant]

REACTIONS (3)
  - Delusion [None]
  - Weight increased [None]
  - Confusional state [None]
